FAERS Safety Report 9401345 (Version 1)
Quarter: 2013Q3

REPORT INFORMATION
  Report Type: Spontaneous
  Country: GB (occurrence: GB)
  Receive Date: 20130715
  Receipt Date: 20130715
  Transmission Date: 20140515
  Serious: Yes (Hospitalization, Other)
  Sender: FDA-Public Use
  Company Number: GB-ABBOTT-13X-167-1117309-00

PATIENT
  Age: 51 Year
  Sex: 0

DRUGS (8)
  1. CLARITHROMYCIN IV [Suspect]
     Indication: PNEUMONIA PNEUMOCOCCAL
     Route: 042
     Dates: start: 20110519, end: 20110525
  2. LEVOFLOXACIN [Suspect]
     Indication: PNEUMONIA
     Route: 041
     Dates: start: 20110519, end: 20110520
  3. PENICILLIN [Suspect]
     Indication: PRODUCT USED FOR UNKNOWN INDICATION
     Route: 042
     Dates: start: 20110607
  4. AMOXICILLIN [Suspect]
     Indication: PNEUMONIA PNEUMOCOCCAL
     Route: 042
     Dates: start: 20110521, end: 20110525
  5. LEVOFLOXACIN [Suspect]
     Indication: PRODUCT USED FOR UNKNOWN INDICATION
     Route: 048
     Dates: start: 20110526, end: 20110602
  6. BENZYLPENICILLIN [Suspect]
     Indication: PNEUMONIA
     Route: 042
     Dates: start: 20110518, end: 20110520
  7. AMOXICILLIN [Suspect]
     Indication: PRODUCT USED FOR UNKNOWN INDICATION
     Route: 048
     Dates: start: 20110526, end: 20110601
  8. TAZOBACTAM [Suspect]
     Indication: PRODUCT USED FOR UNKNOWN INDICATION
     Route: 042
     Dates: start: 20110607

REACTIONS (2)
  - Clostridium difficile infection [Unknown]
  - Diarrhoea [Unknown]
